FAERS Safety Report 8211822-3 (Version None)
Quarter: 2012Q1

REPORT INFORMATION
  Report Type: 
  Country: None (occurrence: None)
  Receive Date: 20120315
  Receipt Date: 20120312
  Transmission Date: 20120608
  Serious: No
  Sender: FDA-Public Use
  Company Number: US-PFIZER INC-2012066259

PATIENT
  Age: 32 Year
  Sex: Female
  Weight: 48.073 kg

DRUGS (1)
  1. PRISTIQ [Suspect]
     Indication: DEPRESSION
     Dosage: 50 MG, DAILY
     Dates: start: 20120308

REACTIONS (3)
  - DECREASED APPETITE [None]
  - FLUID INTAKE REDUCED [None]
  - HYPERSOMNIA [None]
